FAERS Safety Report 23271952 (Version 4)
Quarter: 2024Q1

REPORT INFORMATION
  Report Type: Spontaneous
  Country: US (occurrence: US)
  Receive Date: 20231207
  Receipt Date: 20240308
  Transmission Date: 20240410
  Serious: Yes (Hospitalization)
  Sender: FDA-Public Use
  Company Number: US-SAREPTA THERAPEUTICS INC.-SRP2023-004105

PATIENT
  Age: 5 Year
  Sex: Male
  Weight: 22.5 kg

DRUGS (3)
  1. ELEVIDYS [Suspect]
     Active Substance: DELANDISTROGENE MOXEPARVOVEC-ROKL
     Indication: Duchenne muscular dystrophy
     Dosage: UNK
     Route: 042
     Dates: start: 20231009, end: 20231009
  2. PREDNISONE [Concomitant]
     Active Substance: PREDNISONE
     Indication: Infusion
     Dosage: 2.8MG/KG/DAY, QD
     Route: 048
     Dates: start: 20231002
  3. FAMOTIDINE [Concomitant]
     Active Substance: FAMOTIDINE
     Indication: Gastrointestinal disorder prophylaxis
     Dosage: 10 MILLIGRAM, QD
     Route: 048
     Dates: start: 20231008, end: 20231122

REACTIONS (3)
  - Liver injury [Recovered/Resolved]
  - Abnormal behaviour [Not Recovered/Not Resolved]
  - Vomiting [Recovered/Resolved]

NARRATIVE: CASE EVENT DATE: 20231016
